FAERS Safety Report 16589370 (Version 3)
Quarter: 2020Q1

REPORT INFORMATION
  Report Type: Spontaneous
  Country: DE (occurrence: DE)
  Receive Date: 20190718
  Receipt Date: 20200229
  Transmission Date: 20200409
  Serious: Yes (Other)
  Sender: FDA-Public Use
  Company Number: DE-AUROBINDO-AUR-APL-2019-040646

PATIENT
  Sex: Male

DRUGS (4)
  1. NIVOLUMAB [Suspect]
     Active Substance: NIVOLUMAB
     Indication: MALIGNANT MELANOMA
     Dosage: 240 MILLIGRAM, 2 WEEK
     Route: 042
     Dates: start: 20180903, end: 20190612
  2. IPILIMUMAB [Suspect]
     Active Substance: IPILIMUMAB
     Indication: MALIGNANT MELANOMA
     Dosage: UNK
     Route: 042
  3. ETORICOXIB. [Concomitant]
     Active Substance: ETORICOXIB
     Indication: PRODUCT USED FOR UNKNOWN INDICATION
     Dosage: UNK
     Route: 065
  4. MONTELUKAST [Suspect]
     Active Substance: MONTELUKAST SODIUM
     Indication: DYSPNOEA
     Dosage: UNK
     Route: 065

REACTIONS (11)
  - Non-cardiac chest pain [Recovering/Resolving]
  - Arthritis [Recovered/Resolved]
  - Rash maculo-papular [Recovering/Resolving]
  - Endocrine disorder [Recovered/Resolved]
  - Spinal pain [Recovering/Resolving]
  - Amylase increased [Recovered/Resolved]
  - Dyspnoea [Recovering/Resolving]
  - Fatigue [Unknown]
  - Bacterial infection [Recovered/Resolved]
  - Bone pain [Unknown]
  - Sialadenosis [Recovered/Resolved]

NARRATIVE: CASE EVENT DATE: 20181102
